FAERS Safety Report 15659773 (Version 4)
Quarter: 2019Q2

REPORT INFORMATION
  Report Type: Spontaneous
  Country: FR (occurrence: FR)
  Receive Date: 20181127
  Receipt Date: 20190607
  Transmission Date: 20190711
  Serious: Yes (Other)
  Sender: FDA-Public Use
  Company Number: FR-AUROBINDO-AUR-APL-2018-041553

PATIENT
  Age: 45 Year
  Sex: Female

DRUGS (4)
  1. MOXIFLOXACIN. [Suspect]
     Active Substance: MOXIFLOXACIN
     Indication: PNEUMONIA PNEUMOCOCCAL
     Dosage: UNK
     Route: 065
  2. MOXIFLOXACIN. [Suspect]
     Active Substance: MOXIFLOXACIN
     Indication: INTERSTITIAL LUNG DISEASE
  3. CLEMIZOLE PENICILLIN [Concomitant]
     Active Substance: CLEMIZOLE PENICILLIN
     Dosage: 6 MILLIGRAM, 6 MG, (DOSE CUMULATED)
     Route: 065
  4. CLEMIZOLE PENICILLIN [Concomitant]
     Active Substance: CLEMIZOLE PENICILLIN
     Indication: PNEUMONIA PNEUMOCOCCAL
     Dosage: UNK
     Route: 065

REACTIONS (14)
  - Eosinophilia [Unknown]
  - Cytopenia [Unknown]
  - Renal disorder [Unknown]
  - Urticaria [Recovered/Resolved]
  - Serum sickness [Unknown]
  - Pyrexia [Unknown]
  - Angioedema [Unknown]
  - Anaphylactic shock [Unknown]
  - Cough [Recovered/Resolved]
  - Vasculitis [Unknown]
  - Dyspnoea [Recovered/Resolved]
  - Anaphylactic reaction [Recovered/Resolved]
  - Hepatitis [Unknown]
  - Bronchospasm [Unknown]
